FAERS Safety Report 22276357 (Version 1)
Quarter: 2023Q2

REPORT INFORMATION
  Report Type: Report from Study
  Country: US (occurrence: US)
  Receive Date: 20230503
  Receipt Date: 20230503
  Transmission Date: 20230722
  Serious: Yes (Other)
  Sender: FDA-Public Use
  Company Number: US-ABBVIE-4748716

PATIENT
  Sex: Female

DRUGS (1)
  1. RINVOQ [Suspect]
     Active Substance: UPADACITINIB
     Indication: Product used for unknown indication
     Route: 048
     Dates: start: 20221027

REACTIONS (4)
  - Spinal stenosis [Unknown]
  - Neck pain [Not Recovered/Not Resolved]
  - Intervertebral disc disorder [Unknown]
  - Back pain [Not Recovered/Not Resolved]
